FAERS Safety Report 9789186 (Version 1)
Quarter: 2013Q4

REPORT INFORMATION
  Report Type: Spontaneous
  Country: DK (occurrence: FR)
  Receive Date: 20131230
  Receipt Date: 20131230
  Transmission Date: 20140711
  Serious: Yes (Hospitalization)
  Sender: FDA-Public Use
  Company Number: FR-FRI-1000052492

PATIENT
  Age: 33 Year
  Sex: Female

DRUGS (4)
  1. ESCITALOPRAM [Suspect]
     Dosage: DRUG OVERDOSE OF 12 TABLETS
     Route: 048
     Dates: start: 20131020, end: 20131020
  2. LEXOMIL [Suspect]
     Dosage: DRUG OVERDOSE OF 15 TABLETS
     Route: 048
     Dates: start: 20131020, end: 20131020
  3. LYRICA [Suspect]
     Dosage: DRUG OVERDOSE OF OF 21 DF
     Route: 048
     Dates: start: 20131020, end: 20131020
  4. OLANZAPINE [Suspect]
     Dosage: DRUG OVERDOSE OF 28 TABLETS
     Route: 048
     Dates: start: 20131020, end: 20131020

REACTIONS (4)
  - Confusional state [Recovering/Resolving]
  - Somnolence [Recovering/Resolving]
  - Depressed level of consciousness [Recovering/Resolving]
  - Overdose [Recovering/Resolving]
